FAERS Safety Report 4473204-X (Version None)
Quarter: 2004Q4

REPORT INFORMATION
  Report Type: 
  Country: None (occurrence: None)
  Receive Date: 20041008
  Receipt Date: 20040929
  Transmission Date: 20050328
  Serious: Yes (Other)
  Sender: FDA-Public Use
  Company Number: 2004-08-0236

PATIENT
  Age: 40 Year
  Sex: Male

DRUGS (2)
  1. DIPROSONE [Suspect]
     Indication: PSORIASIS
     Dosage: 1-2 X/DAY TOP-DERM
     Route: 061
     Dates: start: 19960101
  2. DIPROSONE [Suspect]
     Indication: PSORIASIS
     Dosage: 1-2 X/DAY TOP-DERM
     Route: 061
     Dates: start: 20010101

REACTIONS (6)
  - CATARACT SUBCAPSULAR [None]
  - GLAUCOMA [None]
  - OPTIC NEUROPATHY [None]
  - PUPILLARY DISORDER [None]
  - ROSACEA [None]
  - VISUAL FIELD DEFECT [None]
